FAERS Safety Report 19589124 (Version 9)
Quarter: 2022Q4

REPORT INFORMATION
  Report Type: Spontaneous
  Country: CA (occurrence: CA)
  Receive Date: 20210721
  Receipt Date: 20221129
  Transmission Date: 20230113
  Serious: Yes (Death, Other)
  Sender: FDA-Public Use
  Company Number: CA-PFIZER INC-2021403870

PATIENT
  Age: 67 Year
  Sex: Male
  Weight: 125 kg

DRUGS (18)
  1. RUXIENCE [Suspect]
     Active Substance: RITUXIMAB-PVVR
     Indication: Granulomatosis with polyangiitis
     Dosage: 500 MG EVERY 4 MONTHS
     Route: 042
  2. RUXIENCE [Suspect]
     Active Substance: RITUXIMAB-PVVR
     Dosage: 500 MG, EVERY 4 MONTHS
     Route: 042
     Dates: start: 20210203, end: 20210706
  3. RUXIENCE [Suspect]
     Active Substance: RITUXIMAB-PVVR
     Dosage: 500 MG DAY 1 AND 15 EVERY 4 MONTHS
     Route: 042
     Dates: start: 20210203
  4. RUXIENCE [Suspect]
     Active Substance: RITUXIMAB-PVVR
     Dosage: 500 MG DAY 1 AND 15 EVERY 4 MONTHS
     Route: 042
     Dates: start: 20210706
  5. RUXIENCE [Suspect]
     Active Substance: RITUXIMAB-PVVR
     Dosage: 500 MG, EVERY 6 MONTHS
     Route: 042
     Dates: start: 20220106, end: 20220106
  6. RUXIENCE [Suspect]
     Active Substance: RITUXIMAB-PVVR
     Dosage: 500 MG
     Route: 042
     Dates: start: 20220704
  7. ACETAMINOPHEN [Concomitant]
     Active Substance: ACETAMINOPHEN
     Indication: Premedication
     Dosage: 650 MG
     Dates: start: 20210706, end: 20210706
  8. ACETAMINOPHEN [Concomitant]
     Active Substance: ACETAMINOPHEN
     Dosage: 650 MG
     Dates: start: 20220106, end: 20220106
  9. ACETAMINOPHEN [Concomitant]
     Active Substance: ACETAMINOPHEN
     Dosage: 650 MG
     Dates: start: 20220704, end: 20220704
  10. DIPHENHYDRAMINE [Concomitant]
     Active Substance: DIPHENHYDRAMINE
     Indication: Premedication
     Dosage: 50 MG
     Dates: start: 20210706, end: 20210706
  11. DIPHENHYDRAMINE [Concomitant]
     Active Substance: DIPHENHYDRAMINE
     Dosage: 50 MG
     Dates: start: 20220106, end: 20220106
  12. DIPHENHYDRAMINE [Concomitant]
     Active Substance: DIPHENHYDRAMINE
     Dosage: 50 MG
     Dates: start: 20220704, end: 20220704
  13. METHYLPREDNISOLONE [Concomitant]
     Active Substance: METHYLPREDNISOLONE
     Indication: Premedication
     Dosage: 100 MG
     Dates: start: 20210706, end: 20210706
  14. METHYLPREDNISOLONE [Concomitant]
     Active Substance: METHYLPREDNISOLONE
     Dosage: 100 MG
     Dates: start: 20220106, end: 20220106
  15. METHYLPREDNISOLONE [Concomitant]
     Active Substance: METHYLPREDNISOLONE
     Dosage: 100 MG
     Dates: start: 20220704, end: 20220704
  16. ROSUVASTATIN [Concomitant]
     Active Substance: ROSUVASTATIN
     Dosage: UNK
  17. SULFADIAZINE\TRIMETHOPRIM [Concomitant]
     Active Substance: SULFADIAZINE\TRIMETHOPRIM
     Dosage: UNK
  18. XARELTO [Concomitant]
     Active Substance: RIVAROXABAN
     Dosage: UNK

REACTIONS (13)
  - Death [Fatal]
  - Eye injury [Unknown]
  - Oesophageal stenosis [Unknown]
  - Therapeutic response shortened [Unknown]
  - Injection site extravasation [Unknown]
  - Blood pressure fluctuation [Unknown]
  - Headache [Unknown]
  - Regurgitation [Unknown]
  - Dyspnoea [Unknown]
  - Fall [Not Recovered/Not Resolved]
  - Eye disorder [Not Recovered/Not Resolved]
  - Off label use [Unknown]
  - Inappropriate schedule of product administration [Unknown]

NARRATIVE: CASE EVENT DATE: 20210101
